FAERS Safety Report 12216165 (Version 3)
Quarter: 2016Q2

REPORT INFORMATION
  Report Type: Spontaneous
  Country: CA (occurrence: CA)
  Receive Date: 20160329
  Receipt Date: 20160411
  Transmission Date: 20160815
  Serious: Yes (Other)
  Sender: FDA-Public Use
  Company Number: CA-ROCHE-1732689

PATIENT
  Age: 75 Year
  Sex: Female

DRUGS (1)
  1. XOLAIR [Suspect]
     Active Substance: OMALIZUMAB
     Indication: ASTHMA
     Route: 058
     Dates: start: 20150420

REACTIONS (11)
  - Skin ulcer [Unknown]
  - Blister rupture [Unknown]
  - Pulmonary oedema [Unknown]
  - Drug ineffective [Unknown]
  - Gastrointestinal disorder [Unknown]
  - Bronchitis [Unknown]
  - Dyspnoea [Not Recovered/Not Resolved]
  - Cough [Unknown]
  - Pneumonia [Unknown]
  - Chest pain [Unknown]
  - Influenza [Unknown]

NARRATIVE: CASE EVENT DATE: 201511
